FAERS Safety Report 5321309-3 (Version None)
Quarter: 2007Q2

REPORT INFORMATION
  Report Type: 
  Country: None (occurrence: None)
  Receive Date: 20070507
  Receipt Date: 20070507
  Transmission Date: 20071010
  Serious: Yes (Hospitalization)
  Sender: FDA-Public Use
  Company Number: None

PATIENT
  Sex: Female

DRUGS (8)
  1. CIPROFLOXACIN [Suspect]
     Indication: URINARY TRACT INFECTION
     Dosage: 400 MG Q12H IV
     Route: 042
     Dates: start: 20070414, end: 20070417
  2. TIZANIDINE 4 MG UDL [Suspect]
     Indication: MULTIPLE SCLEROSIS
     Dosage: 8 MG QAM, 4 MG TID PO
     Route: 048
     Dates: start: 20070414, end: 20070416
  3. BACLOFEN [Concomitant]
  4. GABAPENTIN [Concomitant]
  5. OXYCONTIN [Concomitant]
  6. OXYCODONE HCL [Concomitant]
  7. PREMPRO [Concomitant]
  8. IBUPROFEN [Concomitant]

REACTIONS (9)
  - AMNESIA [None]
  - CONFUSIONAL STATE [None]
  - DRUG INTERACTION [None]
  - HALLUCINATION [None]
  - HYPOTENSION [None]
  - LACK OF SPONTANEOUS SPEECH [None]
  - SEDATION [None]
  - SOMNOLENCE [None]
  - UNRESPONSIVE TO STIMULI [None]
